FAERS Safety Report 20817770 (Version 1)
Quarter: 2022Q2

REPORT INFORMATION
  Report Type: Spontaneous
  Country: GB (occurrence: GB)
  Receive Date: 20220512
  Receipt Date: 20220512
  Transmission Date: 20220721
  Serious: No
  Sender: FDA-Public Use
  Company Number: None

PATIENT
  Sex: Female

DRUGS (1)
  1. PREGABALIN [Suspect]
     Active Substance: PREGABALIN
     Indication: Ill-defined disorder
     Dosage: 150 MILLIGRAM
     Route: 048

REACTIONS (3)
  - Malaise [Recovering/Resolving]
  - Somnolence [Recovering/Resolving]
  - Medication error [Unknown]
